FAERS Safety Report 4699868-3 (Version None)
Quarter: 2005Q2

REPORT INFORMATION
  Report Type: 
  Country: None (occurrence: None)
  Receive Date: 20050623
  Receipt Date: 20050604
  Transmission Date: 20051028
  Serious: Yes (Death)
  Sender: FDA-Public Use
  Company Number: ENTC2005-0150

PATIENT
  Age: 86 Year
  Sex: Female

DRUGS (4)
  1. STALEVO 100 [Suspect]
     Indication: PARKINSON'S DISEASE
     Dosage: 300 MG (100 MG, 3 IN 1 D); ORAL
     Route: 048
  2. DOGMATYL [Concomitant]
  3. AKINETON [Concomitant]
  4. NIAR [Concomitant]

REACTIONS (4)
  - ACUTE MYOCARDIAL INFARCTION [None]
  - ACUTE RESPIRATORY FAILURE [None]
  - CARDIO-RESPIRATORY ARREST [None]
  - SUDDEN DEATH [None]
